FAERS Safety Report 6371789-X (Version None)
Quarter: 2009Q3

REPORT INFORMATION
  Report Type: 
  Country: None (occurrence: None)
  Receive Date: 20090923
  Receipt Date: 20090911
  Transmission Date: 20100115
  Serious: Yes (Hospitalization)
  Sender: FDA-Public Use
  Company Number: US-WYE-H10950709

PATIENT
  Age: 50 Year
  Sex: Female
  Weight: 81.72 kg

DRUGS (7)
  1. EFFEXOR XR [Suspect]
     Route: 048
  2. NORCO [Suspect]
     Indication: PAIN
     Dosage: 10 MG/325 MG 1-2 TABLETS EVERY 4 HOURS PRN
     Route: 048
  3. HALDOL [Suspect]
     Route: 048
  4. BACLOFEN [Suspect]
     Indication: PAIN
  5. KADIAN [Suspect]
     Indication: PAIN
     Route: 048
     Dates: start: 19990101, end: 20090803
  6. KADIAN [Suspect]
     Route: 048
     Dates: start: 20090804
  7. WELLBUTRIN SR [Suspect]
     Route: 048

REACTIONS (1)
  - RESPIRATORY DEPRESSION [None]
